FAERS Safety Report 24689070 (Version 2)
Quarter: 2024Q4

REPORT INFORMATION
  Report Type: Spontaneous
  Country: US (occurrence: US)
  Receive Date: 20241203
  Receipt Date: 20241216
  Transmission Date: 20250115
  Serious: Yes (Other)
  Sender: TEVA
  Company Number: US-TEVA-VS-3269057

PATIENT
  Sex: Female

DRUGS (1)
  1. CLONIDINE [Suspect]
     Active Substance: CLONIDINE
     Indication: Product used for unknown indication
     Dosage: STRENGTH AND DOSE :0.2 MG/24HR, CLONIDINE HYDROCHLORIDE
     Route: 062

REACTIONS (2)
  - Respiratory depression [Unknown]
  - Adverse event [Unknown]
